FAERS Safety Report 11878511 (Version 1)
Quarter: 2015Q4

REPORT INFORMATION
  Report Type: Spontaneous
  Country: US (occurrence: None)
  Receive Date: 20151229
  Receipt Date: 20151229
  Transmission Date: 20160305
  Serious: Yes (Life-Threatening, Hospitalization, Disabling, Other)
  Sender: FDA-Public Use
  Company Number: None

PATIENT
  Age: 69 Year
  Sex: Male
  Weight: 79.38 kg

DRUGS (5)
  1. TRAZODONE [Concomitant]
     Active Substance: TRAZODONE HYDROCHLORIDE
  2. RIFAXIMIN [Concomitant]
     Active Substance: RIFAXIMIN
  3. LACTULOSE. [Concomitant]
     Active Substance: LACTULOSE
  4. VIEKIRA PAK [Suspect]
     Active Substance: DASABUVIR\OMBITASVIR\PARITAPREVIR\RITONAVIR
     Indication: HEPATITIS C
     Dosage: 4 PILLS TWICE DAILY
     Route: 048
     Dates: start: 20150530, end: 20150730
  5. RAMELTEON [Concomitant]
     Active Substance: RAMELTEON

REACTIONS (45)
  - Vision blurred [None]
  - Platelet count decreased [None]
  - Epistaxis [None]
  - Discomfort [None]
  - Eructation [None]
  - Portal hypertension [None]
  - Encephalopathy [None]
  - Fungal infection [None]
  - Tongue discolouration [None]
  - Thinking abnormal [None]
  - Muscle spasms [None]
  - Sneezing [None]
  - Eye swelling [None]
  - Muscular weakness [None]
  - Moaning [None]
  - Wound [None]
  - Candida infection [None]
  - Oedema [None]
  - Blood pressure increased [None]
  - Malaise [None]
  - Anger [None]
  - Dyspepsia [None]
  - Stoma site haemorrhage [None]
  - Peripheral swelling [None]
  - Yellow skin [None]
  - Bacterial infection [None]
  - Depression [None]
  - Atrophic glossitis [None]
  - Confusional state [None]
  - Lip dry [None]
  - Blister [None]
  - Flatulence [None]
  - Fatigue [None]
  - Anaemia [None]
  - Tremor [None]
  - Oral mucosal discolouration [None]
  - Eye disorder [None]
  - Speech disorder [None]
  - Chest pain [None]
  - Acute kidney injury [None]
  - Amnesia [None]
  - Ammonia increased [None]
  - Weight increased [None]
  - Mastication disorder [None]
  - Pain [None]

NARRATIVE: CASE EVENT DATE: 20150530
